FAERS Safety Report 9337884 (Version 2)
Quarter: 2013Q3

REPORT INFORMATION
  Report Type: Spontaneous
  Country: US (occurrence: US)
  Receive Date: 20130608
  Receipt Date: 20130703
  Transmission Date: 20140515
  Serious: Yes (Other)
  Sender: FDA-Public Use
  Company Number: US-PFIZER INC-2012224354

PATIENT
  Age: 69 Year
  Sex: Female
  Weight: 69.39 kg

DRUGS (26)
  1. LYRICA [Suspect]
     Indication: FIBROMYALGIA
     Dosage: 150 MG, 2X/DAY
     Route: 048
     Dates: start: 2012
  2. EFFEXOR XR [Suspect]
     Indication: DEPRESSION
     Dosage: 150 MG, 1X/DAY
     Route: 048
     Dates: start: 2012
  3. NORVASC [Suspect]
     Dosage: UNK
  4. SPIRONOLACTONE [Concomitant]
     Indication: HYPERTENSION
     Dosage: 50 MG, 1X/DAY
  5. CHLORTHALIDONE [Concomitant]
     Indication: HYPERTENSION
     Dosage: 25 MG, 1X/DAY
  6. LEVOTHYROXINE [Concomitant]
     Indication: HYPOTHYROIDISM
     Dosage: 112 UG, 1X/DAY
  7. FUROSEMIDE [Concomitant]
     Dosage: 20 MG, 1X/DAY
  8. OMEPRAZOLE [Concomitant]
     Indication: GASTROOESOPHAGEAL REFLUX DISEASE
     Dosage: 20 MG, 2X/DAY
  9. GABAPENTIN [Concomitant]
     Indication: FIBROMYALGIA
     Dosage: 600 MG, 3X/DAY
  10. FLUOXETINE HYDROCHLORIDE [Concomitant]
     Indication: FIBROMYALGIA
     Dosage: 20 MG, 2X/DAY
  11. ACETAMINOPHEN [Concomitant]
     Indication: PAIN
     Dosage: 5-325, EVERY 4HOURS AS NEEDED
  12. NAPROXEN [Concomitant]
     Indication: ANTIINFLAMMATORY THERAPY
     Dosage: 500 MG, 2X/DAY
  13. TRAZODONE [Concomitant]
     Indication: SLEEP DISORDER
     Dosage: 100 MG, 1X/DAY
  14. VENTOLIN HFA [Concomitant]
     Indication: ASTHMA
     Dosage: 2 PUFFS PRN
  15. ADVAIR [Concomitant]
     Indication: ASTHMA
     Dosage: 500/50 1 PUFF--AM/PM
  16. PREDNISONE [Concomitant]
     Indication: ASTHMA
     Dosage: PRN-HOME
  17. GLUCOSAMINE [Concomitant]
     Dosage: 2000 MG, 1X/DAY
  18. VITAMIN D [Concomitant]
     Dosage: 1000 IU, 1X/DAY
  19. VITAMIN C [Concomitant]
     Dosage: 500 (UNKNOWN UNIT), 1X/DAY
  20. CETIRIZINE [Concomitant]
     Indication: HYPERSENSITIVITY
     Dosage: 10 MG, 1X/DAY
  21. TRAMADOL [Concomitant]
     Indication: PAIN
     Dosage: 50MG 2 TABLETS EVERY 6HOURS
  22. METANX [Concomitant]
     Dosage: UNK
  23. LIDODERM [Concomitant]
     Dosage: 5% PATCH 1 X L2HOURS DAILY
  24. VITAMIN B12 [Concomitant]
     Dosage: UNK, MONTHLY
  25. OCUVITE LUTEIN [Concomitant]
     Indication: EYE DISORDER
     Dosage: UNK
  26. EFFEXOR [Concomitant]
     Indication: FIBROMYALGIA
     Dosage: 150 MG, 1X/DAY

REACTIONS (1)
  - Oesophageal spasm [Not Recovered/Not Resolved]
